FAERS Safety Report 18469966 (Version 3)
Quarter: 2022Q1

REPORT INFORMATION
  Report Type: Other
  Country: AU (occurrence: None)
  Receive Date: 20201106
  Receipt Date: 20220120
  Transmission Date: 20220423
  Serious: Yes (Death)
  Sender: FDA-Public Use
  Company Number: AU-ROCHE-2709225

PATIENT

DRUGS (2)
  1. PERTUZUMAB [Suspect]
     Active Substance: PERTUZUMAB
     Indication: HER2 positive breast cancer
     Route: 065
  2. TRASTUZUMAB [Concomitant]
     Active Substance: TRASTUZUMAB
     Route: 065

REACTIONS (1)
  - Neoplasm malignant [Fatal]
